FAERS Safety Report 8105709 (Version 4)
Quarter: 2012Q4

REPORT INFORMATION
  Report Type: 
  Country: US (occurrence: US)
  Receive Date: 20110825
  Receipt Date: 20121011
  Transmission Date: 20130627
  Serious: Yes (Hospitalization, Other)
  Sender: FDA-Public Use
  Company Number: US-BAYER-2011-075679

PATIENT
  Age: 22 Year
  Sex: Female

DRUGS (3)
  1. YAZ [Suspect]
     Dosage: UNK
     Dates: start: 2006, end: 2008
  2. ZOLOFT [Concomitant]
     Dosage: 50 mg, UNK
  3. AMBIEN [Concomitant]

REACTIONS (3)
  - Gallbladder injury [None]
  - Cholecystitis chronic [None]
  - Injury [None]
